FAERS Safety Report 19254967 (Version 1)
Quarter: 2021Q2

REPORT INFORMATION
  Report Type: Report from Study
  Country: CA (occurrence: CA)
  Receive Date: 20210513
  Receipt Date: 20210513
  Transmission Date: 20210717
  Serious: Yes (Other)
  Sender: FDA-Public Use
  Company Number: CA-ACCORD-224876

PATIENT
  Sex: Female

DRUGS (13)
  1. LETROZOLE. [Suspect]
     Active Substance: LETROZOLE
     Indication: BREAST CANCER
  2. PALBOCICLIB [Suspect]
     Active Substance: PALBOCICLIB
     Indication: BREAST CANCER
  3. RIBOCICLIB. [Suspect]
     Active Substance: RIBOCICLIB
     Indication: BREAST CANCER
  4. DIMENHYDRINATE. [Concomitant]
     Active Substance: DIMENHYDRINATE
  5. TYLENOL [Concomitant]
     Active Substance: ACETAMINOPHEN
  6. COLECALCIFEROL [Concomitant]
     Active Substance: CHOLECALCIFEROL
     Indication: PROPHYLAXIS
  7. CALCIUM GLUCONATE. [Concomitant]
     Active Substance: CALCIUM GLUCONATE
     Indication: PROPHYLAXIS
     Dosage: 2 EVERY 1 DAYS
     Route: 065
  8. CALCIUM CARBONATE. [Concomitant]
     Active Substance: CALCIUM CARBONATE
  9. FISH OIL [Concomitant]
     Active Substance: FISH OIL
     Indication: PROPHYLAXIS
  10. PANTOPRAZOLE [Concomitant]
     Active Substance: PANTOPRAZOLE
  11. ERGOCALCIFEROL. [Concomitant]
     Active Substance: ERGOCALCIFEROL
     Indication: PROPHYLAXIS
     Dosage: 2 EVERY 1 DAYS
  12. ZOPICLONE [Concomitant]
     Active Substance: ZOPICLONE
  13. ZOLEDRONIC ACID [Concomitant]
     Active Substance: ZOLEDRONIC ACID
     Dosage: FREQUENCY ?CYCLICAL

REACTIONS (1)
  - Neutropenia [Not Recovered/Not Resolved]
